FAERS Safety Report 6254155-7 (Version None)
Quarter: 2009Q3

REPORT INFORMATION
  Report Type: 
  Country: None (occurrence: None)
  Receive Date: 20090629
  Receipt Date: 20090622
  Transmission Date: 20100115
  Serious: Yes (Other)
  Sender: FDA-Public Use
  Company Number: C-09-001

PATIENT
  Sex: Male

DRUGS (2)
  1. INDOMETHACIN [Suspect]
     Dosage: 75 MG, ONCE A DAY, ORAL
     Route: 048
  2. PREDNISONE [Concomitant]

REACTIONS (2)
  - DRUG INEFFECTIVE [None]
  - PRODUCT QUALITY ISSUE [None]
